FAERS Safety Report 8377792-2 (Version None)
Quarter: 2012Q2

REPORT INFORMATION
  Report Type: 
  Country: None (occurrence: None)
  Receive Date: 20120522
  Receipt Date: 20120416
  Transmission Date: 20120825
  Serious: Yes (Other)
  Sender: FDA-Public Use
  Company Number: JP-MERCK-1103USA02626

PATIENT
  Age: 73 Year
  Sex: Male

DRUGS (3)
  1. MIKELAN LA [Concomitant]
     Indication: NORMAL TENSION GLAUCOMA
     Route: 065
     Dates: start: 20080423
  2. LEVOCABASTINE HYDROCHLORIDE [Concomitant]
     Route: 065
     Dates: start: 20100310, end: 20100602
  3. TAFLUPROST [Suspect]
     Indication: NORMAL TENSION GLAUCOMA
     Route: 047
     Dates: start: 20100602, end: 20110302

REACTIONS (2)
  - BLEPHARAL PIGMENTATION [None]
  - LYMPHOMA [None]
